FAERS Safety Report 4804522-0 (Version None)
Quarter: 2005Q4

REPORT INFORMATION
  Report Type: 
  Country: None (occurrence: None)
  Receive Date: 20051017
  Receipt Date: 20051004
  Transmission Date: 20060501
  Serious: Yes (Hospitalization)
  Sender: FDA-Public Use
  Company Number: GBWYE026704OCT05

PATIENT
  Age: 38 Year
  Sex: Male

DRUGS (1)
  1. IBUPROFEN [Suspect]
     Dosage: 400 MG 1X PER 4 HR, ORAL
     Route: 048
     Dates: start: 20050801, end: 20050901

REACTIONS (6)
  - ABDOMINAL PAIN [None]
  - DUODENITIS [None]
  - GASTRIC ULCER [None]
  - HAEMATEMESIS [None]
  - HELICOBACTER PYLORI IDENTIFICATION TEST POSITIVE [None]
  - OVERDOSE [None]
